FAERS Safety Report 8364445-X (Version None)
Quarter: 2012Q2

REPORT INFORMATION
  Report Type: 
  Country: None (occurrence: None)
  Receive Date: 20120514
  Receipt Date: 20120425
  Transmission Date: 20120825
  Serious: Yes (Hospitalization)
  Sender: FDA-Public Use
  Company Number: JPI-P-019501

PATIENT
  Age: 34 Year
  Sex: Female
  Weight: 104.3273 kg

DRUGS (8)
  1. MODAFINIL [Concomitant]
  2. MOMETASONE FUROATE MONOHYDRATE [Concomitant]
  3. XYREM [Suspect]
     Indication: CATAPLEXY
     Dosage: SEE IMAGE
     Route: 048
     Dates: start: 20110107, end: 20110101
  4. XYREM [Suspect]
     Indication: CATAPLEXY
     Dosage: SEE IMAGE
     Route: 048
     Dates: start: 20110101, end: 20111024
  5. XYREM [Suspect]
     Indication: CATAPLEXY
     Dosage: SEE IMAGE
     Route: 048
     Dates: start: 20111025
  6. LORATADINE [Concomitant]
  7. IBUPROFEN [Concomitant]
  8. ESOMEPRAZOLE MAGNESIUM [Concomitant]

REACTIONS (20)
  - ARTHRALGIA [None]
  - NERVE COMPRESSION [None]
  - NEPHROLITHIASIS [None]
  - FLUID RETENTION [None]
  - NECK PAIN [None]
  - FALL [None]
  - HYPOAESTHESIA [None]
  - BENIGN NEOPLASM OF THYROID GLAND [None]
  - EAR INFECTION [None]
  - HYPNAGOGIC HALLUCINATION [None]
  - MUSCLE SPASMS [None]
  - BACK PAIN [None]
  - BREAST PAIN [None]
  - GASTROOESOPHAGEAL REFLUX DISEASE [None]
  - MUSCLE STRAIN [None]
  - PAIN IN EXTREMITY [None]
  - PARAESTHESIA [None]
  - CONTRAST MEDIA ALLERGY [None]
  - URTICARIA [None]
  - CHEST PAIN [None]
